FAERS Safety Report 16541068 (Version 1)
Quarter: 2019Q3

REPORT INFORMATION
  Report Type: Spontaneous
  Country: US (occurrence: US)
  Receive Date: 20190708
  Receipt Date: 20190708
  Transmission Date: 20191004
  Serious: No
  Sender: FDA-Public Use
  Company Number: US-AVEDRO-AVE-2019-0138-AE

PATIENT
  Age: 23 Year
  Sex: Male

DRUGS (4)
  1. PHOTREXA [Suspect]
     Active Substance: RIBOFLAVIN 5^-PHOSPHATE SODIUM
     Indication: KERATOCONUS
     Route: 047
     Dates: start: 20190503, end: 20190503
  2. BANDAGE CONTACT LENS [Suspect]
     Active Substance: DEVICE
     Indication: PRODUCT USED FOR UNKNOWN INDICATION
     Route: 047
     Dates: start: 20190503, end: 20190503
  3. KXL SYSTEM [Suspect]
     Active Substance: DEVICE
     Indication: KERATOCONUS
     Route: 047
     Dates: start: 20190503, end: 20190503
  4. PHOTREXA VISCOUS [Suspect]
     Active Substance: RIBOFLAVIN 5^-PHOSPHATE SODIUM
     Indication: KERATOCONUS
     Route: 047
     Dates: start: 20190503, end: 20190503

REACTIONS (5)
  - Keratitis [Unknown]
  - Visual impairment [Unknown]
  - Corneal infiltrates [Unknown]
  - Corneal oedema [Unknown]
  - Infective keratitis [Unknown]

NARRATIVE: CASE EVENT DATE: 20190504
